FAERS Safety Report 25808953 (Version 6)
Quarter: 2025Q4

REPORT INFORMATION
  Report Type: Spontaneous
  Country: GB (occurrence: GB)
  Receive Date: 20250916
  Receipt Date: 20251205
  Transmission Date: 20260118
  Serious: Yes (Hospitalization, Other)
  Sender: ELI LILLY AND COMPANY
  Company Number: GB-MORNHCPR-MSH202509-000743

PATIENT
  Sex: Female

DRUGS (73)
  1. DULOXETINE HYDROCHLORIDE [Suspect]
     Active Substance: DULOXETINE HYDROCHLORIDE
     Indication: Hypermobility syndrome
     Dosage: UNK UNK, UNKNOWN
     Route: 065
  2. DULOXETINE HYDROCHLORIDE [Suspect]
     Active Substance: DULOXETINE HYDROCHLORIDE
     Indication: Fibromyalgia
  3. DULOXETINE HYDROCHLORIDE [Suspect]
     Active Substance: DULOXETINE HYDROCHLORIDE
     Indication: Intervertebral disc degeneration
  4. DULOXETINE HYDROCHLORIDE [Suspect]
     Active Substance: DULOXETINE HYDROCHLORIDE
     Indication: Neuropathy peripheral
  5. DULOXETINE HYDROCHLORIDE [Suspect]
     Active Substance: DULOXETINE HYDROCHLORIDE
     Indication: Hemiplegic migraine
  6. DULOXETINE HYDROCHLORIDE [Suspect]
     Active Substance: DULOXETINE HYDROCHLORIDE
     Indication: Endometriosis
  7. DULOXETINE HYDROCHLORIDE [Suspect]
     Active Substance: DULOXETINE HYDROCHLORIDE
     Indication: Arthralgia
  8. DULOXETINE HYDROCHLORIDE [Suspect]
     Active Substance: DULOXETINE HYDROCHLORIDE
     Indication: Spinal osteoarthritis
  9. DULOXETINE HYDROCHLORIDE [Suspect]
     Active Substance: DULOXETINE HYDROCHLORIDE
     Indication: Hyperparathyroidism
  10. DULOXETINE HYDROCHLORIDE [Suspect]
     Active Substance: DULOXETINE HYDROCHLORIDE
     Indication: Hernia
  11. TRAMADOL [Suspect]
     Active Substance: TRAMADOL
     Indication: Hypermobility syndrome
     Dosage: UNK UNK, UNKNOWN
     Route: 065
  12. TRAMADOL [Suspect]
     Active Substance: TRAMADOL
     Indication: Fibromyalgia
  13. TRAMADOL [Suspect]
     Active Substance: TRAMADOL
     Indication: Intervertebral disc degeneration
  14. TRAMADOL [Suspect]
     Active Substance: TRAMADOL
     Indication: Neuropathy peripheral
  15. TRAMADOL [Suspect]
     Active Substance: TRAMADOL
     Indication: Hemiplegic migraine
  16. TRAMADOL [Suspect]
     Active Substance: TRAMADOL
     Indication: Endometriosis
  17. TRAMADOL [Suspect]
     Active Substance: TRAMADOL
     Indication: Arthralgia
  18. TRAMADOL [Suspect]
     Active Substance: TRAMADOL
     Indication: Spinal osteoarthritis
  19. TRAMADOL [Suspect]
     Active Substance: TRAMADOL
     Indication: Hyperparathyroidism
  20. TRAMADOL [Suspect]
     Active Substance: TRAMADOL
     Indication: Hernia
  21. PREGABALIN [Suspect]
     Active Substance: PREGABALIN
     Indication: Hypermobility syndrome
     Dosage: UNK UNK, UNKNOWN
     Route: 065
  22. PREGABALIN [Suspect]
     Active Substance: PREGABALIN
     Indication: Fibromyalgia
  23. PREGABALIN [Suspect]
     Active Substance: PREGABALIN
     Indication: Intervertebral disc degeneration
  24. PREGABALIN [Suspect]
     Active Substance: PREGABALIN
     Indication: Neuropathy peripheral
  25. PREGABALIN [Suspect]
     Active Substance: PREGABALIN
     Indication: Hemiplegic migraine
  26. PREGABALIN [Suspect]
     Active Substance: PREGABALIN
     Indication: Endometriosis
  27. PREGABALIN [Suspect]
     Active Substance: PREGABALIN
     Indication: Arthralgia
  28. PREGABALIN [Suspect]
     Active Substance: PREGABALIN
     Indication: Spinal osteoarthritis
  29. PREGABALIN [Suspect]
     Active Substance: PREGABALIN
     Indication: Hyperparathyroidism
  30. PREGABALIN [Suspect]
     Active Substance: PREGABALIN
     Indication: Hernia
  31. TRAMADOL HYDROCHLORIDE [Suspect]
     Active Substance: TRAMADOL HYDROCHLORIDE
     Indication: Hypermobility syndrome
     Dosage: UNK UNK, UNKNOWN
     Route: 065
  32. TRAMADOL HYDROCHLORIDE [Suspect]
     Active Substance: TRAMADOL HYDROCHLORIDE
     Indication: Fibromyalgia
  33. TRAMADOL HYDROCHLORIDE [Suspect]
     Active Substance: TRAMADOL HYDROCHLORIDE
     Indication: Intervertebral disc degeneration
  34. TRAMADOL HYDROCHLORIDE [Suspect]
     Active Substance: TRAMADOL HYDROCHLORIDE
     Indication: Neuropathy peripheral
  35. TRAMADOL HYDROCHLORIDE [Suspect]
     Active Substance: TRAMADOL HYDROCHLORIDE
     Indication: Hemiplegic migraine
  36. TRAMADOL HYDROCHLORIDE [Suspect]
     Active Substance: TRAMADOL HYDROCHLORIDE
     Indication: Endometriosis
  37. TRAMADOL HYDROCHLORIDE [Suspect]
     Active Substance: TRAMADOL HYDROCHLORIDE
     Indication: Arthralgia
  38. TRAMADOL HYDROCHLORIDE [Suspect]
     Active Substance: TRAMADOL HYDROCHLORIDE
     Indication: Spinal osteoarthritis
  39. TRAMADOL HYDROCHLORIDE [Suspect]
     Active Substance: TRAMADOL HYDROCHLORIDE
     Indication: Hyperparathyroidism
  40. TRAMADOL HYDROCHLORIDE [Suspect]
     Active Substance: TRAMADOL HYDROCHLORIDE
     Indication: Hernia
  41. COCODAMOL [Suspect]
     Active Substance: ACETAMINOPHEN\CODEINE PHOSPHATE
     Indication: Hypermobility syndrome
     Dosage: UNK UNK, UNKNOWN
     Route: 065
  42. COCODAMOL [Suspect]
     Active Substance: ACETAMINOPHEN\CODEINE PHOSPHATE
     Indication: Fibromyalgia
  43. COCODAMOL [Suspect]
     Active Substance: ACETAMINOPHEN\CODEINE PHOSPHATE
     Indication: Intervertebral disc degeneration
  44. COCODAMOL [Suspect]
     Active Substance: ACETAMINOPHEN\CODEINE PHOSPHATE
     Indication: Neuropathy peripheral
  45. COCODAMOL [Suspect]
     Active Substance: ACETAMINOPHEN\CODEINE PHOSPHATE
     Indication: Hemiplegic migraine
  46. COCODAMOL [Suspect]
     Active Substance: ACETAMINOPHEN\CODEINE PHOSPHATE
     Indication: Endometriosis
  47. COCODAMOL [Suspect]
     Active Substance: ACETAMINOPHEN\CODEINE PHOSPHATE
     Indication: Arthralgia
  48. COCODAMOL [Suspect]
     Active Substance: ACETAMINOPHEN\CODEINE PHOSPHATE
     Indication: Spinal osteoarthritis
  49. COCODAMOL [Suspect]
     Active Substance: ACETAMINOPHEN\CODEINE PHOSPHATE
     Indication: Hyperparathyroidism
  50. COCODAMOL [Suspect]
     Active Substance: ACETAMINOPHEN\CODEINE PHOSPHATE
     Indication: Hernia
  51. BUTYLSCOPOLAMINE BROMIDE [Suspect]
     Active Substance: BUTYLSCOPOLAMINE BROMIDE
     Indication: Irritable bowel syndrome
     Dosage: UNK UNK, UNKNOWN
     Route: 065
  52. ASPIRIN [Suspect]
     Active Substance: ASPIRIN
     Indication: Hypermobility syndrome
     Dosage: UNK UNK, UNKNOWN
     Route: 065
  53. ASPIRIN [Suspect]
     Active Substance: ASPIRIN
     Indication: Fibromyalgia
  54. ASPIRIN [Suspect]
     Active Substance: ASPIRIN
     Indication: Intervertebral disc degeneration
  55. ASPIRIN [Suspect]
     Active Substance: ASPIRIN
     Indication: Neuropathy peripheral
  56. ASPIRIN [Suspect]
     Active Substance: ASPIRIN
     Indication: Hemiplegic migraine
  57. ASPIRIN [Suspect]
     Active Substance: ASPIRIN
     Indication: Endometriosis
  58. ASPIRIN [Suspect]
     Active Substance: ASPIRIN
     Indication: Arthralgia
  59. ASPIRIN [Suspect]
     Active Substance: ASPIRIN
     Indication: Spinal osteoarthritis
  60. ASPIRIN [Suspect]
     Active Substance: ASPIRIN
     Indication: Hyperparathyroidism
  61. ASPIRIN [Suspect]
     Active Substance: ASPIRIN
     Indication: Hernia
  62. NAPROXEN [Suspect]
     Active Substance: NAPROXEN
     Indication: Hypermobility syndrome
     Dosage: UNK UNK, UNKNOWN
     Route: 065
  63. NAPROXEN [Suspect]
     Active Substance: NAPROXEN
     Indication: Fibromyalgia
  64. NAPROXEN [Suspect]
     Active Substance: NAPROXEN
     Indication: Intervertebral disc degeneration
  65. NAPROXEN [Suspect]
     Active Substance: NAPROXEN
     Indication: Neuropathy peripheral
  66. NAPROXEN [Suspect]
     Active Substance: NAPROXEN
     Indication: Hemiplegic migraine
  67. NAPROXEN [Suspect]
     Active Substance: NAPROXEN
     Indication: Endometriosis
  68. NAPROXEN [Suspect]
     Active Substance: NAPROXEN
     Indication: Arthralgia
  69. NAPROXEN [Suspect]
     Active Substance: NAPROXEN
     Indication: Spinal osteoarthritis
  70. NAPROXEN [Suspect]
     Active Substance: NAPROXEN
     Indication: Hyperparathyroidism
  71. NAPROXEN [Suspect]
     Active Substance: NAPROXEN
     Indication: Hernia
  72. SENNA [Suspect]
     Active Substance: SENNOSIDES
     Indication: Irritable bowel syndrome
     Dosage: UNK UNK, UNKNOWN
     Route: 065
  73. ACETAMINOPHEN\CODEINE PHOSPHATE [Suspect]
     Active Substance: ACETAMINOPHEN\CODEINE PHOSPHATE
     Indication: Product used for unknown indication
     Dosage: UNK UNK, UNKNOWN
     Route: 065

REACTIONS (8)
  - Post-traumatic stress disorder [Unknown]
  - Pneumonia [Unknown]
  - Traumatic lung injury [Unknown]
  - Asthma [Unknown]
  - Irritable bowel syndrome [Unknown]
  - Rash [Unknown]
  - Constipation [Unknown]
  - Diarrhoea [Unknown]
